FAERS Safety Report 7414313-2 (Version None)
Quarter: 2011Q2

REPORT INFORMATION
  Report Type: 
  Country: None (occurrence: None)
  Receive Date: 20110414
  Receipt Date: 20110406
  Transmission Date: 20111010
  Serious: Yes (Hospitalization)
  Sender: FDA-Public Use
  Company Number: US-US-EMD SERONO, INC.-7036100

PATIENT
  Sex: Female

DRUGS (2)
  1. IBUPROFEN [Suspect]
  2. REBIF [Suspect]
     Indication: MULTIPLE SCLEROSIS
     Route: 058
     Dates: start: 20101123, end: 20101201

REACTIONS (2)
  - STAPHYLOCOCCAL INFECTION [None]
  - GASTRIC ULCER HAEMORRHAGE [None]
